FAERS Safety Report 22643820 (Version 2)
Quarter: 2023Q2

REPORT INFORMATION
  Report Type: Spontaneous
  Country: US (occurrence: None)
  Receive Date: 20230627
  Receipt Date: 20230629
  Transmission Date: 20230721
  Serious: Yes (Other)
  Sender: FDA-Public Use
  Company Number: 2023A144923

PATIENT
  Sex: Female

DRUGS (1)
  1. KOSELUGO [Suspect]
     Active Substance: SELUMETINIB
     Route: 048

REACTIONS (8)
  - Localised infection [Unknown]
  - Neurofibroma [Unknown]
  - Drug ineffective [Unknown]
  - Ejection fraction decreased [Unknown]
  - Alopecia [Unknown]
  - Dermatitis acneiform [Unknown]
  - Pain [Unknown]
  - Off label use [Unknown]
